FAERS Safety Report 6730626-1 (Version None)
Quarter: 2010Q2

REPORT INFORMATION
  Report Type: 
  Country: None (occurrence: None)
  Receive Date: 20100518
  Receipt Date: 20100507
  Transmission Date: 20101027
  Serious: Yes (Hospitalization, Other)
  Sender: FDA-Public Use
  Company Number: JP-PFIZER INC-2010053478

PATIENT
  Age: 72 Year
  Sex: Female
  Weight: 55 kg

DRUGS (14)
  1. ZITHROMAC SR [Suspect]
     Indication: UPPER RESPIRATORY TRACT INFLAMMATION
     Dosage: 2 G, 1X/DAY
     Route: 048
     Dates: start: 20100419, end: 20100419
  2. SULPYRINE [Suspect]
     Indication: PYREXIA
     Dosage: 500 MG, 1X/DAY
     Route: 042
     Dates: start: 20100419, end: 20100419
  3. MARZULENE S [Concomitant]
     Dosage: UNK
     Route: 048
     Dates: end: 20100420
  4. SELBEX [Concomitant]
     Dosage: UNK
     Route: 048
     Dates: end: 20100420
  5. VITAMIN C [Concomitant]
     Dosage: UNK
     Route: 048
     Dates: end: 20100420
  6. VITAMIN C [Concomitant]
     Route: 042
     Dates: end: 20100420
  7. DORAL [Concomitant]
     Dosage: UNK
     Route: 048
     Dates: end: 20100420
  8. EURODIN [Concomitant]
     Dosage: UNK
     Route: 048
     Dates: end: 20100420
  9. RESLIN [Concomitant]
     Dosage: UNK
     Route: 048
     Dates: end: 20100420
  10. PURSENNID [Concomitant]
     Dosage: UNK
     Route: 048
     Dates: end: 20100420
  11. GRANDAXIN [Concomitant]
     Dosage: UNK
     Route: 048
     Dates: end: 20100420
  12. ROCALTROL [Concomitant]
     Route: 048
     Dates: end: 20100421
  13. NORNICICAMIN [Concomitant]
     Route: 042
     Dates: start: 20100419, end: 20100419
  14. FLAVITAN [Concomitant]
     Route: 042
     Dates: start: 20100419, end: 20100419

REACTIONS (1)
  - RHABDOMYOLYSIS [None]
